FAERS Safety Report 7062615-4 (Version None)
Quarter: 2010Q4

REPORT INFORMATION
  Report Type: 
  Country: None (occurrence: None)
  Receive Date: 20101026
  Receipt Date: 20100107
  Transmission Date: 20110411
  Serious: No
  Sender: FDA-Public Use
  Company Number: US-PFIZER INC-2009299694

PATIENT
  Sex: Female
  Weight: 122.45 kg

DRUGS (16)
  1. LIPITOR [Suspect]
     Indication: BLOOD CHOLESTEROL INCREASED
     Dosage: 10 MG, 1X/DAY
  2. LIPITOR [Suspect]
     Indication: HYPERLIPIDAEMIA
     Dosage: 80 MG, 1X/DAY
  3. LIPITOR [Suspect]
     Dosage: 40 MG, 1X/DAY
  4. ACTOS [Concomitant]
     Dosage: UNK
  5. METFORMIN HYDROCHLORIDE [Concomitant]
     Dosage: UNK
  6. SYNTHROID [Concomitant]
     Dosage: UNK
  7. AMARYL [Concomitant]
     Dosage: UNK
  8. LASIX [Concomitant]
     Dosage: UNK
  9. ZETIA [Concomitant]
     Dosage: UNK
  10. BENICAR [Concomitant]
     Dosage: UNK
  11. METOPROLOL TARTRATE [Concomitant]
     Dosage: UNK
  12. NORVASC [Concomitant]
     Dosage: UNK
  13. ACETYLSALICYLIC ACID [Concomitant]
     Dosage: UNK
  14. INSULIN GLARGINE [Concomitant]
     Dosage: UNK
  15. ZOLOFT [Concomitant]
     Dosage: UNK
  16. METFORMIN [Concomitant]
     Dosage: UNK

REACTIONS (3)
  - ABDOMINAL DISCOMFORT [None]
  - DRUG DISPENSING ERROR [None]
  - NAUSEA [None]
